FAERS Safety Report 23233318 (Version 1)
Quarter: 2023Q4

REPORT INFORMATION
  Report Type: Spontaneous
  Country: ES (occurrence: ES)
  Receive Date: 20231128
  Receipt Date: 20231128
  Transmission Date: 20240110
  Serious: Yes (Hospitalization, Other)
  Sender: FDA-Public Use
  Company Number: ES-AEMPS-371214

PATIENT
  Age: 81 Year
  Sex: Female

DRUGS (7)
  1. LOSARTAN [Interacting]
     Active Substance: LOSARTAN
     Indication: Product used for unknown indication
     Dosage: 50 MILLIGRAM, ONCE A DAY
     Route: 048
     Dates: start: 20170730, end: 20171212
  2. ENALAPRIL [Interacting]
     Active Substance: ENALAPRIL
     Indication: Product used for unknown indication
     Dosage: 10 MILLIGRAM, TWO TIMES A DAY, 10MG CADA 12 HORAS
     Route: 048
     Dates: start: 20170730
  3. BISOPROLOL [Concomitant]
     Active Substance: BISOPROLOL\BISOPROLOL FUMARATE
     Indication: Product used for unknown indication
     Dosage: 2.5 MILLIGRAM, ONCE A DAY
     Route: 048
     Dates: start: 20170730
  4. APIXABAN [Concomitant]
     Active Substance: APIXABAN
     Indication: Product used for unknown indication
     Dosage: UNK, 1-0-1
     Route: 048
     Dates: start: 20170730
  5. NOVORAPID [Concomitant]
     Active Substance: INSULIN ASPART
     Indication: Insulin-requiring type 2 diabetes mellitus
     Dosage: 8 INTERNATIONAL UNIT, ONCE A DAY, 2-2-4
     Route: 058
     Dates: start: 20170730
  6. LEVEMIR [Concomitant]
     Active Substance: INSULIN DETEMIR
     Indication: Insulin-requiring type 2 diabetes mellitus
     Dosage: 40 INTERNATIONAL UNIT, ONCE A DAY, 10-0-30
     Route: 058
     Dates: start: 20170730
  7. DOXAZOSIN MESYLATE [Concomitant]
     Active Substance: DOXAZOSIN MESYLATE
     Indication: Product used for unknown indication
     Dosage: 4 MILLIGRAM, ONCE A DAY
     Route: 048
     Dates: start: 20170730

REACTIONS (3)
  - Hyperkalaemia [Recovered/Resolved]
  - Electrocardiogram abnormal [Recovered/Resolved]
  - Drug interaction [Unknown]

NARRATIVE: CASE EVENT DATE: 20171212
